FAERS Safety Report 15917914 (Version 14)
Quarter: 2020Q2

REPORT INFORMATION
  Report Type: Spontaneous
  Country: DE (occurrence: DE)
  Receive Date: 20190205
  Receipt Date: 20200612
  Transmission Date: 20200713
  Serious: Yes (Other)
  Sender: FDA-Public Use
  Company Number: DE-AUROBINDO-AUR-APL-2018-059773

PATIENT
  Sex: Female
  Weight: 53 kg

DRUGS (29)
  1. KISQALI [Suspect]
     Active Substance: RIBOCICLIB
     Dosage: 400 MILLIGRAM, ONCE A DAY (21 DAYS ON /7 DAYS OFF)
     Route: 048
     Dates: start: 20180907, end: 20180920
  2. KISQALI [Suspect]
     Active Substance: RIBOCICLIB
     Dosage: 400 MILLIGRAM, CYCLICAL (16 DAYS ON /7 DAYS OFF)
     Route: 048
     Dates: start: 20181121, end: 20181206
  3. KISQALI [Suspect]
     Active Substance: RIBOCICLIB
     Dosage: 400 MILLIGRAM, ONCE A DAY (21 DAYS ON /7 DAYS OFF)
     Route: 048
     Dates: start: 20190419, end: 20190516
  4. KISQALI [Suspect]
     Active Substance: RIBOCICLIB
     Dosage: 400 MILLIGRAM, ONCE A DAY (21 DAYS ON /7 DAYS OFF)
     Route: 048
     Dates: start: 20190614, end: 20190711
  5. KISQALI [Suspect]
     Active Substance: RIBOCICLIB
     Dosage: 400 MILLIGRAM, ONCE A DAY (21 DAYS ON /7 DAYS OFF)
     Route: 048
     Dates: start: 20190816, end: 20190905
  6. KISQALI [Suspect]
     Active Substance: RIBOCICLIB
     Dosage: 400 MILLIGRAM, ONCE A DAY (21 DAYS ON /7 DAYS OFF)
     Route: 048
     Dates: start: 20190806, end: 20190905
  7. KISQALI [Suspect]
     Active Substance: RIBOCICLIB
     Dosage: 400 MILLIGRAM, ONCE A DAY (21 DAYS ON /7 DAYS OFF)
     Route: 048
     Dates: start: 20190322, end: 20190418
  8. KISQALI [Suspect]
     Active Substance: RIBOCICLIB
     Dosage: 400 MILLIGRAM, ONCE A DAY (21 DAYS ON /7 DAYS OFF)
     Route: 048
     Dates: start: 20190712, end: 20190808
  9. KISQALI [Suspect]
     Active Substance: RIBOCICLIB
     Dosage: 400 MILLIGRAM, ONCE A DAY (SCHEME: INTAKE FOR 21 DAYS,  7 DAYS OF  PAUSE)
     Route: 048
     Dates: start: 20191004, end: 20191031
  10. KISQALI [Suspect]
     Active Substance: RIBOCICLIB
     Dosage: 400 MILLIGRAM, ONCE A DAY (SCHEME: INTAKE FOR 21 DAYS,  7 DAYS OF  PAUSE)
     Route: 048
     Dates: start: 20200228, end: 20200326
  11. KISQALI [Suspect]
     Active Substance: RIBOCICLIB
     Dosage: 400 MILLIGRAM, CYCLICAL (21 DAYS ON /7 DAYS OFF)
     Route: 048
     Dates: start: 20180907, end: 20180913
  12. KISQALI [Suspect]
     Active Substance: RIBOCICLIB
     Indication: BREAST CANCER METASTATIC
     Dosage: 600 MILLIGRAM, ONCE A DAY (21 DAYS ON /7 DAYS OFF)
     Route: 048
     Dates: start: 20180824, end: 20180906
  13. KISQALI [Suspect]
     Active Substance: RIBOCICLIB
     Dosage: 400 MILLIGRAM, CYCLICAL (21 DAYS ON /7 DAYS OFF)
     Route: 048
     Dates: start: 20181019, end: 20181108
  14. KISQALI [Suspect]
     Active Substance: RIBOCICLIB
     Dosage: 400 MILLIGRAM, CYCLICAL (21 DAYS ON /7 DAYS OFF),
     Route: 048
     Dates: start: 20181221, end: 20190117
  15. LETROZOLE. [Suspect]
     Active Substance: LETROZOLE
     Indication: BREAST CANCER METASTATIC
     Dosage: 2.5 MILLIGRAM, ONCE A DAY
     Route: 048
     Dates: start: 20180824
  16. KISQALI [Suspect]
     Active Substance: RIBOCICLIB
     Dosage: 400 MILLIGRAM, ONCE A DAY (21 DAYS ON /7 DAYS OFF)
     Route: 048
     Dates: start: 20190118, end: 20190214
  17. KISQALI [Suspect]
     Active Substance: RIBOCICLIB
     Dosage: 400 MILLIGRAM, ONCE A DAY (21 DAYS ON /7 DAYS OFF)
     Route: 048
     Dates: start: 20190222, end: 20190321
  18. KISQALI [Suspect]
     Active Substance: RIBOCICLIB
     Dosage: 400 MILLIGRAM, ONCE A DAY (SCHEME: INTAKE FOR 21 DAYS,  7 DAYS OF  PAUSE)
     Route: 048
     Dates: start: 20200103, end: 20200130
  19. KISQALI [Suspect]
     Active Substance: RIBOCICLIB
     Dosage: 400 MILLIGRAM, ONCE A DAY (SCHEME: INTAKE FOR 21 DAYS,  7 DAYS OF  PAUSE)
     Route: 048
     Dates: start: 20200131, end: 20200227
  20. KISQALI [Suspect]
     Active Substance: RIBOCICLIB
     Dosage: 400 MILLIGRAM, ONCE A DAY (21 DAYS ON /7 DAYS OFF)
     Route: 048
     Dates: start: 20181019, end: 20181115
  21. KISQALI [Suspect]
     Active Substance: RIBOCICLIB
     Dosage: 400 MILLIGRAM, ONCE A DAY(21 DAYS ON /7 DAYS OFF)
     Route: 048
     Dates: start: 20190517, end: 20190613
  22. KISQALI [Suspect]
     Active Substance: RIBOCICLIB
     Dosage: 400 MILLIGRAM, CYCLICAL (21 DAYS ON /7 DAYS OFF)
     Route: 048
     Dates: start: 20180921, end: 20181011
  23. KISQALI [Suspect]
     Active Substance: RIBOCICLIB
     Dosage: 400 MILLIGRAM, ONCE A DAY (21 DAYS ON /7 DAYS OFF)
     Route: 048
     Dates: start: 20180921, end: 20181018
  24. KISQALI [Suspect]
     Active Substance: RIBOCICLIB
     Dosage: 400 MILLIGRAM, ONCE A DAY
     Route: 048
     Dates: start: 20181019, end: 20181120
  25. KISQALI [Suspect]
     Active Substance: RIBOCICLIB
     Dosage: 400 MILLIGRAM, CYCLICAL (21 DAYS ON /7 DAYS OFF),
     Route: 048
     Dates: start: 20181121, end: 20181213
  26. KISQALI [Suspect]
     Active Substance: RIBOCICLIB
     Dosage: 400 MILLIGRAM, ONCE A DAY (21 DAYS ON /7 DAYS OFF)
     Route: 048
     Dates: start: 20190118, end: 20190214
  27. KISQALI [Suspect]
     Active Substance: RIBOCICLIB
     Dosage: 400 MILLIGRAM, ONCE A DAY (SCHEME: INTAKE FOR 21 DAYS,  7 DAYS OF  PAUSE)
     Route: 048
     Dates: start: 20191101, end: 20191128
  28. KISQALI [Suspect]
     Active Substance: RIBOCICLIB
     Dosage: 400 MILLIGRAM, ONCE A DAY (SCHEME: INTAKE FOR 21 DAYS,  7 DAYS OF  PAUSE)
     Route: 048
     Dates: start: 20191206, end: 20200102
  29. KISQALI [Suspect]
     Active Substance: RIBOCICLIB
     Dosage: 400 MILLIGRAM, ONCE A DAY (21 DAYS ON /7 DAYS OFF)
     Route: 048
     Dates: start: 20190906, end: 20191003

REACTIONS (9)
  - Neutropenia [Recovered/Resolved]
  - Nasopharyngitis [Recovered/Resolved]
  - Memory impairment [Not Recovered/Not Resolved]
  - Urinary tract infection [Recovered/Resolved]
  - Pericardial effusion [Recovered/Resolved]
  - Leukopenia [Recovered/Resolved]
  - Haemoglobin decreased [Unknown]
  - Basophil count increased [Unknown]
  - Peripheral swelling [Recovered/Resolved]

NARRATIVE: CASE EVENT DATE: 20181116
